FAERS Safety Report 6261388-2 (Version None)
Quarter: 2009Q3

REPORT INFORMATION
  Report Type: 
  Country: None (occurrence: None)
  Receive Date: 20090709
  Receipt Date: 20071005
  Transmission Date: 20100115
  Serious: Yes (Hospitalization, Other)
  Sender: FDA-Public Use
  Company Number: US-ASTRAZENECA-2006UW22183

PATIENT
  Age: 16521 Day
  Sex: Female
  Weight: 93.2 kg

DRUGS (22)
  1. SEROQUEL [Suspect]
     Indication: INSOMNIA
     Dosage: 25 MG-200 MG, DAILY
     Route: 048
     Dates: start: 19981203
  2. SEROQUEL [Suspect]
     Indication: DEPRESSION
     Dosage: 25 MG-200 MG, DAILY
     Route: 048
     Dates: start: 19981203
  3. SEROQUEL [Suspect]
     Indication: PANIC ATTACK
     Dosage: 25 MG-200 MG, DAILY
     Route: 048
     Dates: start: 19981203
  4. SELEXA [Concomitant]
  5. PREMARIN [Concomitant]
  6. THEO-DUR [Concomitant]
  7. CARDIZEM [Concomitant]
  8. LEVOTHYROXINE SODIUM [Concomitant]
  9. PROVENTIL-HFA [Concomitant]
  10. TYLENOL (CAPLET) [Concomitant]
  11. MOTRIN [Concomitant]
  12. PRINIVIL [Concomitant]
  13. LIPITOR [Concomitant]
  14. ADVAIR DISKUS 100/50 [Concomitant]
  15. ASPIRIN [Concomitant]
  16. GLUCOPHAGE [Concomitant]
  17. GLUCOTROL [Concomitant]
  18. DITROPAN [Concomitant]
  19. PROTONIX [Concomitant]
  20. ZOLOFT [Concomitant]
  21. VANCERIL [Concomitant]
  22. AZMACORT [Concomitant]

REACTIONS (11)
  - ABDOMINAL INFECTION [None]
  - ASTHMA [None]
  - BRONCHITIS [None]
  - DIABETES MELLITUS [None]
  - OBESITY [None]
  - OBSTRUCTIVE AIRWAYS DISORDER [None]
  - PANCREATIC PSEUDOCYST [None]
  - PANCREATITIS [None]
  - PANCREATITIS RELAPSING [None]
  - PERITONEAL INFECTION [None]
  - SUBDIAPHRAGMATIC ABSCESS [None]
